FAERS Safety Report 10429229 (Version 1)
Quarter: 2014Q3

REPORT INFORMATION
  Report Type: Spontaneous
  Country: US (occurrence: None)
  Receive Date: 20140902
  Receipt Date: 20140902
  Transmission Date: 20150326
  Serious: Yes (Hospitalization)
  Sender: FDA-Public Use
  Company Number: None

PATIENT
  Age: 70 Year
  Sex: Male

DRUGS (7)
  1. DIGOXIN. [Concomitant]
     Active Substance: DIGOXIN
  2. ACETAMINOPHEN. [Concomitant]
     Active Substance: ACETAMINOPHEN
  3. GABAPENTIN. [Concomitant]
     Active Substance: GABAPENTIN
  4. WARFARIN [Suspect]
     Active Substance: WARFARIN
     Indication: ATRIAL FIBRILLATION
     Route: 048
     Dates: start: 20140709, end: 20140710
  5. METOPROLOL [Concomitant]
     Active Substance: METOPROLOL
  6. POTASSIUM CHLORIDE. [Concomitant]
     Active Substance: POTASSIUM CHLORIDE
  7. CHOLECALCIFEROL [Concomitant]
     Active Substance: CHOLECALCIFEROL

REACTIONS (1)
  - International normalised ratio increased [None]

NARRATIVE: CASE EVENT DATE: 20140712
